FAERS Safety Report 9312813 (Version 2)
Quarter: 2013Q2

REPORT INFORMATION
  Report Type: Spontaneous
  Country: US (occurrence: US)
  Receive Date: 20130528
  Receipt Date: 20130606
  Transmission Date: 20140414
  Serious: Yes (Hospitalization, Other)
  Sender: FDA-Public Use
  Company Number: US-009507513-1305USA015679

PATIENT
  Sex: Female
  Weight: 55.78 kg

DRUGS (6)
  1. MK-0000 (111) [Suspect]
  2. ACTONEL [Suspect]
     Indication: OSTEOPOROSIS
     Dosage: 35 MG, QW
     Route: 048
     Dates: start: 2002, end: 20050928
  3. BONIVA [Suspect]
     Indication: OSTEOPOROSIS
     Dosage: 150 MG, QM
     Route: 048
     Dates: start: 20070302, end: 20080101
  4. CALCIUM (UNSPECIFIED) [Concomitant]
     Indication: OSTEOPOROSIS
  5. VITAMIN D (UNSPECIFIED) [Concomitant]
     Indication: OSTEOPOROSIS
  6. CENTRUM SILVER [Concomitant]
     Indication: OSTEOPOROSIS

REACTIONS (36)
  - Osteonecrosis of jaw [Unknown]
  - Nasal operation [Unknown]
  - Renal transplant [Unknown]
  - Nasal septal operation [Unknown]
  - Knee arthroplasty [Unknown]
  - Tooth extraction [Unknown]
  - Tooth extraction [Unknown]
  - Fractured sacrum [Unknown]
  - Intervertebral disc protrusion [Unknown]
  - Spinal osteoarthritis [Unknown]
  - Tooth extraction [Unknown]
  - Alveoloplasty [Unknown]
  - Rheumatoid arthritis [Unknown]
  - Arterial rupture [Unknown]
  - Nasal septum deviation [Unknown]
  - Dental prosthesis user [Unknown]
  - Oral surgery [Unknown]
  - Endodontic procedure [Unknown]
  - Dental care [Unknown]
  - Biopsy bone [Unknown]
  - Oral surgery [Unknown]
  - Foot fracture [Unknown]
  - Sinusitis [Not Recovered/Not Resolved]
  - Cystitis [Recovered/Resolved]
  - Biopsy breast [Unknown]
  - Cystocele [Unknown]
  - Soft tissue atrophy [Unknown]
  - Cystitis [Unknown]
  - Sleep disorder [Unknown]
  - Artificial crown procedure [Unknown]
  - Tooth extraction [Unknown]
  - Dental caries [Unknown]
  - Device failure [Unknown]
  - Artificial crown procedure [Unknown]
  - Device breakage [Unknown]
  - Dental caries [Unknown]
